FAERS Safety Report 12435878 (Version 2)
Quarter: 2016Q3

REPORT INFORMATION
  Report Type: Spontaneous
  Country: TR (occurrence: TR)
  Receive Date: 20160604
  Receipt Date: 20160805
  Transmission Date: 20161109
  Serious: Yes (Hospitalization, Other)
  Sender: FDA-Public Use
  Company Number: TR-ALKEM-001663

PATIENT
  Age: 74 Year
  Sex: Female

DRUGS (5)
  1. HYDROCHLOROTHIAZIDE. [Interacting]
     Active Substance: HYDROCHLOROTHIAZIDE
     Indication: HYPERTENSION
  2. CARBIDOPA/LEVODOPA [Concomitant]
     Active Substance: CARBIDOPA\LEVODOPA
     Dosage: 250 MG LEVODOPA AND 25 MG CARBIDOPA
  3. VALSARTAN. [Interacting]
     Active Substance: VALSARTAN
     Indication: HYPERTENSION
  4. QUETIAPINE/QUETIAPINE FUMARATE [Suspect]
     Active Substance: QUETIAPINE FUMARATE
     Indication: BIPOLAR DISORDER
  5. LITHIUM. [Suspect]
     Active Substance: LITHIUM
     Indication: BIPOLAR DISORDER
     Dosage: DAILY DOSE OF 900 MG

REACTIONS (9)
  - Muscle contractions involuntary [None]
  - Nausea [None]
  - Vomiting [None]
  - Dysarthria [None]
  - Toxicity to various agents [Recovered/Resolved]
  - Muscle rigidity [None]
  - Drug interaction [Recovered/Resolved]
  - Stupor [None]
  - Mental status changes [None]
